FAERS Safety Report 7108474-2 (Version None)
Quarter: 2010Q4

REPORT INFORMATION
  Report Type: 
  Country: None (occurrence: None)
  Receive Date: 20101117
  Receipt Date: 20101108
  Transmission Date: 20110411
  Serious: Yes (Hospitalization)
  Sender: FDA-Public Use
  Company Number: SK-BRISTOL-MYERS SQUIBB COMPANY-15388846

PATIENT
  Age: 69 Year
  Sex: Female

DRUGS (5)
  1. ERBITUX [Suspect]
     Indication: HEAD AND NECK CANCER
     Dosage: WEEKLY,7 ADMINISTRATION IN TOTAL
     Route: 042
     Dates: start: 20100831
  2. ACCUZIDE [Concomitant]
  3. SIOFOR [Concomitant]
  4. DIAPREL [Concomitant]
  5. IBALGIN [Concomitant]

REACTIONS (2)
  - HEPATIC FAILURE [None]
  - HEPATIC NECROSIS [None]
